FAERS Safety Report 10016719 (Version 1)
Quarter: 2014Q1

REPORT INFORMATION
  Report Type: Spontaneous
  Country: US (occurrence: US)
  Receive Date: 20140318
  Receipt Date: 20140318
  Transmission Date: 20141002
  Serious: Yes (Hospitalization)
  Sender: FDA-Public Use
  Company Number: US-ROCHE-1359644

PATIENT
  Age: 60 Year
  Sex: Male
  Weight: 84.4 kg

DRUGS (9)
  1. CELLCEPT [Suspect]
     Indication: PRODUCT USED FOR UNKNOWN INDICATION
     Route: 065
  2. ENBREL [Suspect]
     Indication: RHEUMATOID ARTHRITIS
     Route: 058
     Dates: start: 201206, end: 201309
  3. CUBICIN [Suspect]
     Indication: STAPHYLOCOCCAL INFECTION
     Route: 042
  4. VANCOMYCIN [Suspect]
     Indication: STAPHYLOCOCCAL INFECTION
     Route: 042
     Dates: end: 20130919
  5. PREDNISONE [Concomitant]
  6. ASPIRIN [Concomitant]
  7. LEVOTHYROXINE [Concomitant]
  8. LISINOPRIL [Concomitant]
  9. SIMVASTATIN [Concomitant]

REACTIONS (24)
  - Pleuritic pain [Unknown]
  - Pulmonary artery dilatation [Unknown]
  - Antisynthetase syndrome [Unknown]
  - Joint range of motion decreased [Unknown]
  - Local swelling [Recovered/Resolved]
  - Staphylococcal bacteraemia [Recovered/Resolved]
  - Localised infection [Recovered/Resolved]
  - Rash [Unknown]
  - Computerised tomogram abnormal [Unknown]
  - Blood creatine phosphokinase increased [Unknown]
  - Fatigue [Unknown]
  - Dizziness [Unknown]
  - Hypotension [Unknown]
  - Musculoskeletal chest pain [Unknown]
  - Hypoaesthesia [Unknown]
  - Pruritus [Unknown]
  - Skin discolouration [Unknown]
  - Tenderness [Unknown]
  - Herpes zoster [Unknown]
  - Infection [Unknown]
  - Osteomyelitis [Unknown]
  - Soft tissue infection [Unknown]
  - Pulmonary hypertension [Unknown]
  - White blood cell count increased [Unknown]
